FAERS Safety Report 5233217-7 (Version None)
Quarter: 2007Q1

REPORT INFORMATION
  Report Type: 
  Country: None (occurrence: None)
  Receive Date: 20061204
  Receipt Date: 20060815
  Transmission Date: 20070707
  Serious: No
  Sender: FDA-Public Use
  Company Number: 2006-BP-04099BP

PATIENT
  Age: 65 Year
  Sex: Female

DRUGS (6)
  1. SPIRIVA [Suspect]
     Indication: CHRONIC OBSTRUCTIVE PULMONARY DISEASE
     Dosage: 18 MCG (18 MCG),IH
     Route: 055
  2. SPIRIVA [Suspect]
  3. NAPROXEN [Concomitant]
  4. COMBIVENT (COMBIVENT /01261001/) [Concomitant]
  5. MULTI-VITAMINS [Concomitant]
  6. CALCIUM (CALCIUM) [Concomitant]

REACTIONS (1)
  - AGEUSIA [None]
